FAERS Safety Report 5595684-9 (Version None)
Quarter: 2008Q1

REPORT INFORMATION
  Report Type: 
  Country: None (occurrence: None)
  Receive Date: 20080118
  Receipt Date: 20080116
  Transmission Date: 20080703
  Serious: Yes (Death, Other)
  Sender: FDA-Public Use
  Company Number: PHFR2007GB03598

PATIENT
  Age: 75 Year
  Sex: Female

DRUGS (1)
  1. CLOZARIL [Suspect]
     Indication: PSYCHOTIC DISORDER
     Route: 048

REACTIONS (12)
  - AUTONOMIC NERVOUS SYSTEM IMBALANCE [None]
  - CARDIAC FAILURE [None]
  - CARDIAC FAILURE CONGESTIVE [None]
  - CONSTIPATION [None]
  - INFECTION [None]
  - LOBAR PNEUMONIA [None]
  - MENTAL IMPAIRMENT [None]
  - MULTIPLE SYSTEM ATROPHY [None]
  - ORTHOSTATIC HYPOTENSION [None]
  - PARKINSON'S DISEASE [None]
  - SYNCOPE [None]
  - VENOUS PRESSURE JUGULAR INCREASED [None]
